FAERS Safety Report 9000715 (Version 2)
Quarter: 2013Q1

REPORT INFORMATION
  Report Type: Spontaneous
  Country: NL (occurrence: NL)
  Receive Date: 20130107
  Receipt Date: 20130225
  Transmission Date: 20140127
  Serious: Yes (Other)
  Sender: FDA-Public Use
  Company Number: NL-ELI_LILLY_AND_COMPANY-NL201211002001

PATIENT
  Age: 68 None
  Sex: Female
  Weight: 61 kg

DRUGS (7)
  1. FORSTEO [Suspect]
     Indication: OSTEOPOROSIS
     Dosage: 20 UG, QD
     Route: 058
     Dates: start: 20121024, end: 20130109
  2. CALCIUM CARBONATE W/COLECALCIFEROL [Concomitant]
     Indication: OSTEOPOROSIS
     Dosage: 1 DF, QD
     Dates: start: 201209
  3. HIDROCLOROTIAZIDE [Concomitant]
     Indication: HYPERTENSION
     Dosage: 12.5 MG, QD
     Route: 048
     Dates: start: 2005
  4. METOPROLOL [Concomitant]
     Indication: HYPERTENSION
     Dosage: 50 MG, QD
     Route: 048
     Dates: start: 2005
  5. OXYCODON [Concomitant]
     Indication: PAIN
     Dosage: 15 MG, PRN
     Route: 048
     Dates: start: 201203
  6. PARACETAMOL [Concomitant]
     Indication: PAIN
     Dosage: 3 DF, BID
     Dates: start: 201203
  7. ESOMEPRAZOL                        /01479301/ [Concomitant]
     Indication: GASTRIC DISORDER
     Dosage: 20 MG, QD
     Route: 048

REACTIONS (9)
  - Loss of consciousness [Unknown]
  - Blood pressure increased [Recovering/Resolving]
  - Chest pain [Recovering/Resolving]
  - Dizziness [Recovered/Resolved]
  - Retching [Recovered/Resolved]
  - Diarrhoea [Recovered/Resolved]
  - Headache [Recovering/Resolving]
  - Night sweats [Recovering/Resolving]
  - Nausea [Recovered/Resolved]
